FAERS Safety Report 24917556 (Version 2)
Quarter: 2025Q1

REPORT INFORMATION
  Report Type: Spontaneous
  Country: SE (occurrence: SE)
  Receive Date: 20250203
  Receipt Date: 20250305
  Transmission Date: 20250409
  Serious: Yes (Other)
  Sender: ALEXION PHARMACEUTICALS
  Company Number: SE-AstraZeneca-CH-00795779A

PATIENT

DRUGS (1)
  1. DAPAGLIFLOZIN [Suspect]
     Active Substance: DAPAGLIFLOZIN

REACTIONS (3)
  - Myocardial infarction [Unknown]
  - Asthenia [Unknown]
  - Dizziness [Unknown]
